FAERS Safety Report 16021304 (Version 1)
Quarter: 2019Q1

REPORT INFORMATION
  Report Type: Spontaneous
  Country: DE (occurrence: DE)
  Receive Date: 20190301
  Receipt Date: 20190301
  Transmission Date: 20190418
  Serious: Yes (Hospitalization, Other)
  Sender: FDA-Public Use
  Company Number: DE-AUROBINDO-AUR-APL-2018-013431

PATIENT
  Sex: Male
  Weight: 73 kg

DRUGS (22)
  1. ASPIRIN. [Concomitant]
     Active Substance: ASPIRIN
     Indication: HYPERTENSION
  2. BISOPROLOL [Concomitant]
     Active Substance: BISOPROLOL
     Dosage: 1.25 MILLIGRAM, ONCE A DAY
     Route: 048
  3. TAMSUBLOCK [Concomitant]
     Active Substance: TAMSULOSIN HYDROCHLORIDE
     Indication: BENIGN PROSTATIC HYPERPLASIA
     Dosage: 0.4 MILLIGRAM, ONCE A DAY
     Route: 048
     Dates: start: 20141111
  4. IRINOTECAN [Suspect]
     Active Substance: IRINOTECAN
     Dosage: 85 MILLIGRAM, 1 WEEK, 50 MG/M2
     Route: 042
     Dates: start: 20151125
  5. FOLINIC ACID [Suspect]
     Active Substance: LEUCOVORIN
     Dosage: 340 MILLIGRAM, 1 WEEK
     Route: 042
     Dates: start: 20151125
  6. CITALOPRAM [Concomitant]
     Active Substance: CITALOPRAM HYDROBROMIDE
     Indication: ANXIETY DISORDER
  7. MONO-EMBOLEX [Concomitant]
     Active Substance: CERTOPARIN SODIUM
     Indication: DEEP VEIN THROMBOSIS
     Dosage: 16000 INTERNATIONAL UNIT, ONCE A DAY
     Route: 058
     Dates: start: 20141104
  8. IRINOTECAN [Suspect]
     Active Substance: IRINOTECAN
     Dosage: 102 MILLIGRAM
     Route: 042
     Dates: start: 20150924, end: 20151029
  9. AVASTIN [Suspect]
     Active Substance: BEVACIZUMAB
     Dosage: 365 MILLIGRAM, 2 WEEK
     Route: 042
     Dates: start: 20160317
  10. AVASTIN [Suspect]
     Active Substance: BEVACIZUMAB
     Dosage: 365 MILLIGRAM, 2 WEEK,
     Route: 042
     Dates: start: 20160415
  11. 5-FLUOROURACIL [Suspect]
     Active Substance: FLUOROURACIL
     Indication: COLORECTAL CANCER
     Dosage: 3400 MILLIGRAM, 1 WEEK
     Route: 042
     Dates: start: 20141113, end: 20150608
  12. L-THYROXIN [Concomitant]
     Active Substance: LEVOTHYROXINE SODIUM
     Dosage: 50 MICROGRAM, ONCE A DAY
     Route: 048
  13. AVASTIN [Suspect]
     Active Substance: BEVACIZUMAB
     Dosage: 365 MILLIGRAM, 2 WEEK
     Route: 042
     Dates: start: 20151214
  14. ASPIRIN. [Concomitant]
     Active Substance: ASPIRIN
     Indication: CEREBROVASCULAR DISORDER
     Dosage: 100 MILLIGRAM
     Route: 048
  15. BISOPROLOL [Concomitant]
     Active Substance: BISOPROLOL
     Indication: HYPERTENSION
     Dosage: 2.5 MILLIGRAM
     Route: 048
     Dates: start: 20151022
  16. L-THYROXIN [Concomitant]
     Active Substance: LEVOTHYROXINE SODIUM
     Indication: HYPOTHYROIDISM
     Dosage: 25 MICROGRAM, ONCE A DAY
     Route: 048
  17. OXALIPLATIN. [Suspect]
     Active Substance: OXALIPLATIN
     Indication: COLORECTAL CANCER
     Dosage: 85 MILLIGRAM, 1 WEEK
     Route: 042
     Dates: start: 20150324, end: 20150608
  18. 5-FLUOROURACIL [Suspect]
     Active Substance: FLUOROURACIL
     Dosage: 1700 MILLIGRAM, 1 WEEK, 1000 MG/M2
     Route: 041
     Dates: start: 20151125
  19. CITALOPRAM [Concomitant]
     Active Substance: CITALOPRAM HYDROBROMIDE
     Indication: SLEEP DISORDER
     Dosage: 10 MILLIGRAM, ONCE A DAY
     Route: 048
     Dates: start: 20150623
  20. IRINOTECAN [Suspect]
     Active Substance: IRINOTECAN
     Indication: COLORECTAL CANCER
     Dosage: 136 MILLIGRAM, 1 WEEK
     Route: 042
     Dates: start: 20150108, end: 20150115
  21. FOLINIC ACID [Suspect]
     Active Substance: LEUCOVORIN
     Indication: COLORECTAL CANCER
     Dosage: 850 MILLIGRAM, 1 WEEK
     Route: 042
     Dates: start: 20141113, end: 20150608
  22. AVASTIN [Suspect]
     Active Substance: BEVACIZUMAB
     Indication: COLORECTAL CANCER METASTATIC
     Dosage: 5 MILLIGRAM/KILOGRAM, 2 WEEK
     Route: 042
     Dates: start: 20141127

REACTIONS (25)
  - Haemoglobin decreased [Recovered/Resolved]
  - Metastases to liver [Recovered/Resolved]
  - Chills [Recovered/Resolved]
  - Pain [Recovered/Resolved]
  - Ascites [Recovered/Resolved]
  - General physical health deterioration [Recovered/Resolved]
  - Hypertension [Recovered/Resolved]
  - Dehydration [Recovered/Resolved]
  - Anaemia of malignant disease [Recovered/Resolved]
  - Abdominal pain [Recovered/Resolved]
  - Dizziness [Recovered/Resolved]
  - Systemic inflammatory response syndrome [Recovered/Resolved]
  - Proteinuria [Recovered/Resolved]
  - Klebsiella bacteraemia [Recovered/Resolved]
  - Abdominal pain lower [Recovered/Resolved]
  - Salivary hypersecretion [Recovered/Resolved]
  - Cachexia [Recovered/Resolved]
  - Circulatory collapse [Recovered/Resolved]
  - Diarrhoea [Recovered/Resolved]
  - Polyneuropathy [Recovered/Resolved]
  - Tachycardia [Recovered/Resolved]
  - Fatigue [Recovered/Resolved]
  - Syncope [Recovered/Resolved]
  - Atrial flutter [Recovered/Resolved]
  - Cholestasis [Recovered/Resolved]

NARRATIVE: CASE EVENT DATE: 20141113
